FAERS Safety Report 24897567 (Version 1)
Quarter: 2025Q1

REPORT INFORMATION
  Report Type: Spontaneous
  Country: HU (occurrence: HU)
  Receive Date: 20250129
  Receipt Date: 20250129
  Transmission Date: 20250408
  Serious: Yes (Hospitalization, Other)
  Sender: Haleon PLC
  Company Number: HU-002147023-NVSC2022HU135202

PATIENT
  Age: 65 Year
  Sex: Female

DRUGS (19)
  1. CATAFLAM [Suspect]
     Active Substance: DICLOFENAC POTASSIUM
     Indication: Pain
     Route: 065
  2. FENTANYL [Concomitant]
     Active Substance: FENTANYL
     Indication: Product used for unknown indication
     Route: 065
  3. XGEVA [Concomitant]
     Active Substance: DENOSUMAB
     Indication: Product used for unknown indication
     Dosage: UNK, QMO (INJECTION)
     Route: 058
     Dates: start: 20211230
  4. TRAMADOL [Suspect]
     Active Substance: TRAMADOL
     Indication: Pain
     Route: 065
  5. TRAMADOL [Suspect]
     Active Substance: TRAMADOL
     Indication: Analgesic therapy
  6. VITAMIN D3 [Concomitant]
     Active Substance: CHOLECALCIFEROL
     Indication: Product used for unknown indication
     Route: 065
  7. TEGRETOL XR [Suspect]
     Active Substance: CARBAMAZEPINE
     Indication: Pain
     Dosage: 200 MG, QD (FOR 1 WEEK)
     Route: 065
     Dates: start: 20211230, end: 20220103
  8. LETROZOLE [Suspect]
     Active Substance: LETROZOLE
     Indication: Breast cancer
     Route: 065
     Dates: start: 20150108
  9. PREGABALIN [Suspect]
     Active Substance: PREGABALIN
     Indication: Product used for unknown indication
     Dosage: 75 MG, (150MG BID (FOR ONE WEEK)
     Route: 065
  10. Calcium;Colecalciferol; Dexpanthenol; Lysine hydrochloride; Nicotin... [Concomitant]
     Indication: Product used for unknown indication
     Route: 065
  11. CONTROLOC [Concomitant]
     Active Substance: PANTOPRAZOLE SODIUM
     Indication: Product used for unknown indication
     Dosage: 40 MG, QD
     Route: 065
  12. PANTOPRAZOLE [Suspect]
     Active Substance: PANTOPRAZOLE
     Indication: Product used for unknown indication
     Route: 065
  13. FENTANYL [Suspect]
     Active Substance: FENTANYL
     Indication: Product used for unknown indication
     Route: 065
  14. FAMOTIDINE [Concomitant]
     Active Substance: FAMOTIDINE
     Indication: Product used for unknown indication
     Route: 065
  15. CIPROFLOXACIN [Suspect]
     Active Substance: CIPROFLOXACIN
     Indication: Bacteriuria
     Dosage: 500 MG, BID (FOR 7 DAYS)
     Route: 065
  16. ENOXAPARIN SODIUM [Concomitant]
     Active Substance: ENOXAPARIN SODIUM
     Indication: Product used for unknown indication
     Route: 065
  17. LEVOTHYROXINE SODIUM [Concomitant]
     Active Substance: LEVOTHYROXINE SODIUM
     Indication: Product used for unknown indication
     Route: 065
  18. CHLOROPYRAMINE HYDROCHLORIDE [Concomitant]
     Active Substance: CHLOROPYRAMINE HYDROCHLORIDE
     Indication: Product used for unknown indication
     Route: 065
  19. VOLTAREN [Suspect]
     Active Substance: DICLOFENAC SODIUM
     Indication: Pain
     Route: 065
     Dates: start: 20211230

REACTIONS (15)
  - Bell^s palsy [Recovering/Resolving]
  - Pleural neoplasm [Unknown]
  - Vaccination site reaction [Unknown]
  - Bone pain [Not Recovered/Not Resolved]
  - Myalgia [Unknown]
  - Metastases to lung [Unknown]
  - Pulmonary congestion [Unknown]
  - Arthralgia [Not Recovered/Not Resolved]
  - Breast disorder [Unknown]
  - Metastases to bone [Unknown]
  - Pathological fracture [Unknown]
  - COVID-19 [Unknown]
  - Pyrexia [Unknown]
  - Breast disorder [Unknown]
  - Product use in unapproved indication [Unknown]

NARRATIVE: CASE EVENT DATE: 20200220
